FAERS Safety Report 20678569 (Version 1)
Quarter: 2022Q2

REPORT INFORMATION
  Report Type: Spontaneous
  Country: US (occurrence: US)
  Receive Date: 20220406
  Receipt Date: 20220406
  Transmission Date: 20220721
  Serious: No
  Sender: FDA-Public Use
  Company Number: US-Accord-253948

PATIENT

DRUGS (1)
  1. ATROPINE SULFATE [Suspect]
     Active Substance: ATROPINE SULFATE
     Indication: Bradycardia
     Dates: start: 20220208

REACTIONS (2)
  - Syringe issue [Unknown]
  - Inappropriate schedule of product administration [Unknown]
